FAERS Safety Report 9720996 (Version 1)
Quarter: 2013Q4

REPORT INFORMATION
  Report Type: Spontaneous
  Country: US (occurrence: US)
  Receive Date: 20131129
  Receipt Date: 20131129
  Transmission Date: 20140711
  Serious: No
  Sender: FDA-Public Use
  Company Number: US-BAYER-2013-146562

PATIENT
  Age: 81 Year
  Sex: Female
  Weight: 67.12 kg

DRUGS (3)
  1. ALEVE CAPLET [Suspect]
     Indication: BACK PAIN
     Dosage: UNK
     Route: 048
     Dates: start: 20131125
  2. CENTRUM [MINERALS NOS,VITAMINS NOS] [Concomitant]
  3. CITRACAL + D [CALCIUM CITRATE,COLECALCIFEROL] [Concomitant]

REACTIONS (2)
  - Drug ineffective [None]
  - Drug ineffective [None]
